FAERS Safety Report 9892100 (Version 1)
Quarter: 2014Q1

REPORT INFORMATION
  Report Type: Spontaneous
  Country: FR (occurrence: FR)
  Receive Date: 20140212
  Receipt Date: 20140212
  Transmission Date: 20141002
  Serious: Yes (Hospitalization)
  Sender: FDA-Public Use
  Company Number: FR-GLAXOSMITHKLINE-B0965690A

PATIENT
  Sex: Female

DRUGS (1)
  1. IMIGRANE [Suspect]
     Indication: MIGRAINE
     Route: 048
     Dates: end: 201310

REACTIONS (6)
  - Ischaemic stroke [Recovered/Resolved with Sequelae]
  - Headache [Unknown]
  - Neck pain [Unknown]
  - Stress [Unknown]
  - Nausea [Unknown]
  - Speech disorder [Unknown]
